FAERS Safety Report 17764886 (Version 12)
Quarter: 2021Q3

REPORT INFORMATION
  Report Type: Report from Study
  Country: CA (occurrence: CA)
  Receive Date: 20200511
  Receipt Date: 20210909
  Transmission Date: 20211014
  Serious: Yes (Hospitalization, Other)
  Sender: FDA-Public Use
  Company Number: PHHY2016CA037687

PATIENT
  Age: 51 Year
  Sex: Female

DRUGS (26)
  1. XOLAIR [Suspect]
     Active Substance: OMALIZUMAB
     Indication: CHRONIC SPONTANEOUS URTICARIA
     Dosage: 300 MG, EVERY 5?6 WEEKS
     Route: 058
     Dates: start: 20150130
  2. XOLAIR [Suspect]
     Active Substance: OMALIZUMAB
     Indication: CHRONIC SPONTANEOUS URTICARIA
     Dosage: 300 MG, EVERY 6 WEEKS
     Route: 058
     Dates: start: 20141204
  3. XOLAIR [Suspect]
     Active Substance: OMALIZUMAB
     Dosage: UNK
     Route: 058
     Dates: start: 201602
  4. XOLAIR [Suspect]
     Active Substance: OMALIZUMAB
     Dosage: 300 MG, EVERY 5 TO 6 WEEKS
     Route: 058
     Dates: start: 20191227
  5. XOLAIR [Suspect]
     Active Substance: OMALIZUMAB
     Dosage: 300 MG, EVERY 6 WEEKS
     Route: 058
  6. XOLAIR [Suspect]
     Active Substance: OMALIZUMAB
     Dosage: 300 MG EVERY 6 WEEKS
     Route: 058
  7. SYMBICORT [Concomitant]
     Active Substance: BUDESONIDE\FORMOTEROL FUMARATE DIHYDRATE
     Indication: PRODUCT USED FOR UNKNOWN INDICATION
     Dosage: UNK UNK, BID
     Route: 055
  8. XOLAIR [Suspect]
     Active Substance: OMALIZUMAB
     Dosage: UNK
     Route: 058
     Dates: start: 201703
  9. XOLAIR [Suspect]
     Active Substance: OMALIZUMAB
     Dosage: 300 MG, 5 TO 6 WEEKS
     Route: 058
     Dates: start: 20181219
  10. XOLAIR [Suspect]
     Active Substance: OMALIZUMAB
     Dosage: 300 MG, (5 ? 6 WEEKS)
     Route: 058
     Dates: start: 20190130
  11. XOLAIR [Suspect]
     Active Substance: OMALIZUMAB
     Dosage: UNK(EVERY 9 WEEKS)
     Route: 058
  12. XOLAIR [Suspect]
     Active Substance: OMALIZUMAB
     Dosage: 300 MG (EVERY 5/6 WEEKS)
     Route: 058
     Dates: start: 20150130
  13. CICLOSPORIN [Suspect]
     Active Substance: CYCLOSPORINE
     Indication: PRODUCT USED FOR UNKNOWN INDICATION
     Dosage: 100 MG, (MORNING AND EVENING)
     Route: 065
     Dates: start: 20140915, end: 201410
  14. TYLENOL [Concomitant]
     Active Substance: ACETAMINOPHEN
     Indication: SUPPLEMENTATION THERAPY
     Dosage: UNK
     Route: 065
  15. XOLAIR [Suspect]
     Active Substance: OMALIZUMAB
     Dosage: 300 MG, EVERY 5 TO 6 WEEKS
     Route: 058
     Dates: start: 20190605
  16. XOLAIR [Suspect]
     Active Substance: OMALIZUMAB
     Dosage: 300 MG, EVERY 5 TO 6 WEEKS
     Route: 058
     Dates: start: 20190313
  17. XOLAIR [Suspect]
     Active Substance: OMALIZUMAB
     Dosage: 300 MG, EVERY 5 TO 6 WEEKS
     Route: 058
     Dates: start: 20200211
  18. XOLAIR [Suspect]
     Active Substance: OMALIZUMAB
     Dosage: 300 MG, 5?6 WEEKS
     Route: 058
     Dates: start: 20210510
  19. XOLAIR [Suspect]
     Active Substance: OMALIZUMAB
     Dosage: 300 MG EVERY 4 WEEKS
     Route: 058
  20. XOLAIR [Suspect]
     Active Substance: OMALIZUMAB
     Dosage: 300 MG, EVERY 5 TO 6 WEEKS ACCORDING TO PATIENT^S WISHES
     Route: 058
  21. XOLAIR [Suspect]
     Active Substance: OMALIZUMAB
     Dosage: 300 MG EVERY 8 WEEKS
     Route: 058
     Dates: start: 20170128
  22. XOLAIR [Suspect]
     Active Substance: OMALIZUMAB
     Dosage: 300 MG, EVERY 5 TO 6 WEEKS
     Route: 058
     Dates: start: 20190717
  23. XOLAIR [Suspect]
     Active Substance: OMALIZUMAB
     Dosage: 300 MG (EVERY 6 WEEKS)
     Route: 058
  24. VENTOLIN [Concomitant]
     Active Substance: ALBUTEROL SULFATE
     Indication: PRODUCT USED FOR UNKNOWN INDICATION
     Dosage: UNK
     Route: 065
  25. XOLAIR [Suspect]
     Active Substance: OMALIZUMAB
     Dosage: 300 MG, EVERY 5 TO 6 WEEKS
     Route: 058
     Dates: start: 20190424
  26. XOLAIR [Suspect]
     Active Substance: OMALIZUMAB
     Dosage: 300 MG, EVERY 5 TO 6 WEEKS
     Route: 058
     Dates: start: 20191113

REACTIONS (40)
  - Dyspnoea [Unknown]
  - Pruritus [Recovered/Resolved]
  - Feeling hot [Unknown]
  - Choking [Unknown]
  - Hair disorder [Recovered/Resolved]
  - Skin plaque [Recovered/Resolved]
  - Erythema [Unknown]
  - Urticaria [Recovered/Resolved]
  - Amenorrhoea [Unknown]
  - Asthma [Recovering/Resolving]
  - Skin plaque [Recovered/Resolved]
  - Skin plaque [Recovered/Resolved]
  - Pruritus [Not Recovered/Not Resolved]
  - Hot flush [Unknown]
  - Skin sensitisation [Recovered/Resolved]
  - Pain [Unknown]
  - Weight increased [Unknown]
  - Myalgia [Not Recovered/Not Resolved]
  - Inappropriate schedule of product administration [Unknown]
  - Chills [Recovered/Resolved]
  - Acne [Recovered/Resolved]
  - Pruritus [Recovered/Resolved]
  - Fatigue [Unknown]
  - Chills [Unknown]
  - Erythema [Recovered/Resolved]
  - Bronchitis [Unknown]
  - Pruritus [Recovered/Resolved]
  - Paraesthesia [Unknown]
  - Musculoskeletal stiffness [Unknown]
  - Headache [Unknown]
  - Behaviour disorder [Unknown]
  - Influenza [Unknown]
  - Pruritus [Recovered/Resolved]
  - Nasal congestion [Unknown]
  - Vaginal haemorrhage [Unknown]
  - Stress [Unknown]
  - Gallbladder disorder [Unknown]
  - Pruritus [Recovered/Resolved]
  - Skin plaque [Not Recovered/Not Resolved]
  - Urticaria [Unknown]

NARRATIVE: CASE EVENT DATE: 20170323
